FAERS Safety Report 24737998 (Version 1)
Quarter: 2024Q4

REPORT INFORMATION
  Report Type: Other
  Country: AU (occurrence: AU)
  Receive Date: 20241216
  Receipt Date: 20241216
  Transmission Date: 20250114
  Serious: Yes (Hospitalization)
  Sender: B BRAUN
  Company Number: AU-B.Braun Medical Inc.-2167158

PATIENT
  Age: 41 Year
  Sex: Male

DRUGS (8)
  1. CEFEPIME HYDROCHLORIDE [Suspect]
     Active Substance: CEFEPIME HYDROCHLORIDE
     Indication: Arthritis bacterial
  2. MEROPENEM [Suspect]
     Active Substance: MEROPENEM
  3. CEPHALEXIN [Suspect]
     Active Substance: CEPHALEXIN
  4. FLUCLOXACILLIN [Suspect]
     Active Substance: FLUCLOXACILLIN
  5. CLINDAMYCIN [Suspect]
     Active Substance: CLINDAMYCIN
  6. RIFAMPIN [Suspect]
     Active Substance: RIFAMPIN
  7. VANCOMYCIN [Suspect]
     Active Substance: VANCOMYCIN
  8. CIPROFLOXACIN [Suspect]
     Active Substance: CIPROFLOXACIN

REACTIONS (1)
  - Drug reaction with eosinophilia and systemic symptoms [Recovered/Resolved]
